FAERS Safety Report 22165614 (Version 1)
Quarter: 2023Q2

REPORT INFORMATION
  Report Type: Spontaneous
  Country: JP (occurrence: JP)
  Receive Date: 20230403
  Receipt Date: 20230403
  Transmission Date: 20230722
  Serious: Yes (Hospitalization)
  Sender: FDA-Public Use
  Company Number: JP-NOVOPROD-885334

PATIENT
  Age: 45 Year
  Sex: Female
  Weight: 87 kg

DRUGS (16)
  1. RYBELSUS [Suspect]
     Active Substance: SEMAGLUTIDE
     Dosage: 7 MG, QD
     Route: 048
     Dates: start: 202201
  2. RYBELSUS [Suspect]
     Active Substance: SEMAGLUTIDE
     Dosage: 154 MG, QD (7MG TAB. X 22)
     Route: 048
     Dates: start: 20220117, end: 20220117
  3. RYBELSUS [Suspect]
     Active Substance: SEMAGLUTIDE
     Indication: Type 2 diabetes mellitus
     Dosage: 3 MG, QD
     Route: 048
     Dates: start: 202110
  4. LEVOMEPROMAZINE HYDROCHLORIDE [Concomitant]
     Active Substance: LEVOMEPROMAZINE HYDROCHLORIDE
     Dosage: 15 MG, QD
     Route: 048
  5. CANDESARTAN [Concomitant]
     Active Substance: CANDESARTAN
     Dosage: 6 MG, QD
     Route: 048
  6. ATOMOXETINE [Concomitant]
     Active Substance: ATOMOXETINE
     Dosage: 80 MG, QD
  7. LITHIUM CARBONATE [Concomitant]
     Active Substance: LITHIUM CARBONATE
     Dosage: 600 MG, QD
     Route: 048
  8. REXULTI [Concomitant]
     Active Substance: BREXPIPRAZOLE
     Dosage: 2 MG, QD
     Route: 048
  9. SERTRALINE [Concomitant]
     Active Substance: SERTRALINE HYDROCHLORIDE
     Dosage: 25 MG, QD
     Route: 048
  10. BELSOMRA [Concomitant]
     Active Substance: SUVOREXANT
     Dosage: 15 MG, QD
     Route: 048
  11. ESZOPICLONE [Concomitant]
     Active Substance: ESZOPICLONE
     Dosage: 3 MG, QD
     Route: 048
  12. VALPROATE SODIUM [Concomitant]
     Active Substance: VALPROATE SODIUM
     Dosage: 600 MG, QD
     Route: 048
  13. BEZAFIBRATE [Concomitant]
     Active Substance: BEZAFIBRATE
     Dosage: 400 MG, QD
     Route: 048
  14. FEXOFENADINE HYDROCHLORIDE [Concomitant]
     Active Substance: FEXOFENADINE HYDROCHLORIDE
     Dosage: 120 MG, QD
     Route: 048
  15. JARDIANCE [Concomitant]
     Active Substance: EMPAGLIFLOZIN
     Dosage: 10 MG, QD
     Route: 048
  16. XANTOFYL PALMITATE [Concomitant]
     Active Substance: XANTOFYL PALMITATE
     Dosage: 15 MG, QD
     Route: 048

REACTIONS (4)
  - Malaise [Not Recovered/Not Resolved]
  - Nausea [Recovered/Resolved]
  - Vomiting [Recovered/Resolved]
  - Intentional overdose [Unknown]

NARRATIVE: CASE EVENT DATE: 20220117
